FAERS Safety Report 9793214 (Version 1)
Quarter: 2013Q4

REPORT INFORMATION
  Report Type: Spontaneous
  Country: DE (occurrence: None)
  Receive Date: 20131230
  Receipt Date: 20131230
  Transmission Date: 20140711
  Serious: Yes (Other)
  Sender: FDA-Public Use
  Company Number: COL_14870_2013

PATIENT
  Age: 40 Year
  Sex: Female

DRUGS (1)
  1. DURAPHAT [Suspect]
     Indication: DENTAL CARIES
     Dosage: (AS INDICATED ORAL)
     Route: 048
     Dates: end: 201310

REACTIONS (3)
  - Arrhythmia [None]
  - No reaction on previous exposure to drug [None]
  - Hypersensitivity [None]
